FAERS Safety Report 8011538-2 (Version None)
Quarter: 2011Q4

REPORT INFORMATION
  Report Type: 
  Country: None (occurrence: None)
  Receive Date: 20111228
  Receipt Date: 20111226
  Transmission Date: 20120403
  Serious: Yes (Life-Threatening, Hospitalization)
  Sender: FDA-Public Use
  Company Number: FR-B.I. PHARMACEUTICALS,INC./RIDGEFIELD-2011-FF-01224FF

PATIENT
  Sex: Female

DRUGS (5)
  1. IMOVANE [Concomitant]
  2. PIPORTIL [Concomitant]
  3. MICARDIS HCT [Suspect]
     Indication: HYPERTENSION
     Route: 048
     Dates: end: 20111122
  4. OXAZEPAM [Concomitant]
  5. PAROXETINE HCL [Suspect]
     Route: 048
     Dates: end: 20111122

REACTIONS (8)
  - FALL [None]
  - INAPPROPRIATE ANTIDIURETIC HORMONE SECRETION [None]
  - VOMITING [None]
  - HYPONATRAEMIA [None]
  - ELECTROCARDIOGRAM ABNORMAL [None]
  - HYPOKALAEMIA [None]
  - DEPRESSED LEVEL OF CONSCIOUSNESS [None]
  - MUSCULAR WEAKNESS [None]
